FAERS Safety Report 5819964-4 (Version None)
Quarter: 2008Q3

REPORT INFORMATION
  Report Type: 
  Country: None (occurrence: None)
  Receive Date: 20080721
  Receipt Date: 20080701
  Transmission Date: 20090109
  Serious: Yes (Hospitalization, Other)
  Sender: FDA-Public Use
  Company Number: 2008SP014423

PATIENT
  Age: 3 Year
  Sex: Male

DRUGS (3)
  1. CLARITIN [Suspect]
     Indication: DRUG USE FOR UNKNOWN INDICATION
     Dosage: 10 MG; ONCE; PO
     Route: 048
  2. SINGULAIR [Suspect]
     Indication: DRUG USE FOR UNKNOWN INDICATION
     Dosage: 3 DF; PO
     Route: 048
  3. PREVACID [Suspect]
     Indication: DRUG USE FOR UNKNOWN INDICATION
     Dosage: 4 DF; PO
     Route: 048

REACTIONS (4)
  - ACCIDENTAL DRUG INTAKE BY CHILD [None]
  - FATIGUE [None]
  - MULTIPLE DRUG OVERDOSE ACCIDENTAL [None]
  - SOMNOLENCE [None]
